FAERS Safety Report 8251590-2 (Version None)
Quarter: 2012Q2

REPORT INFORMATION
  Report Type: 
  Country: None (occurrence: None)
  Receive Date: 20120402
  Receipt Date: 20120216
  Transmission Date: 20120825
  Serious: No
  Sender: FDA-Public Use
  Company Number: US-B.I. PHARMACEUTICALS,INC./RIDGEFIELD-2012-BP-02097BP

PATIENT
  Age: 68 Year
  Sex: Female

DRUGS (2)
  1. SPIRIVA [Suspect]
  2. QVAR 40 [Concomitant]

REACTIONS (2)
  - APHONIA [None]
  - TONGUE ULCERATION [None]
